FAERS Safety Report 4411017-5 (Version None)
Quarter: 2004Q3

REPORT INFORMATION
  Report Type: 
  Country: None (occurrence: None)
  Receive Date: 20040726
  Receipt Date: 20040720
  Transmission Date: 20050211
  Serious: Yes (Death)
  Sender: FDA-Public Use
  Company Number: 2004UW15101

PATIENT
  Age: 48 Year
  Sex: Female

DRUGS (2)
  1. SEROQUEL [Suspect]
     Dosage: 1000 MG PO
     Route: 048
     Dates: start: 20040101
  2. LITHIUM [Concomitant]

REACTIONS (1)
  - CARDIAC DISORDER [None]
